FAERS Safety Report 23581562 (Version 1)
Quarter: 2024Q1

REPORT INFORMATION
  Report Type: Spontaneous
  Country: US (occurrence: US)
  Receive Date: 20240229
  Receipt Date: 20240229
  Transmission Date: 20240409
  Serious: Yes (Hospitalization, Other)
  Sender: FDA-Public Use
  Company Number: US-SUN PHARMACEUTICAL INDUSTRIES LTD-2024R1-433894

PATIENT
  Age: 65 Year
  Sex: Female

DRUGS (2)
  1. ACYCLOVIR [Suspect]
     Active Substance: ACYCLOVIR
     Indication: Epstein-Barr viraemia
     Route: 065
  2. VALACYCLOVIR [Suspect]
     Active Substance: VALACYCLOVIR HYDROCHLORIDE
     Indication: Epstein-Barr viraemia
     Route: 065

REACTIONS (5)
  - Therapeutic response decreased [Unknown]
  - Disease recurrence [Unknown]
  - Gastritis [Unknown]
  - Lymphoproliferative disorder [Unknown]
  - Diffuse large B-cell lymphoma [Recovering/Resolving]
